FAERS Safety Report 17923061 (Version 4)
Quarter: 2020Q3

REPORT INFORMATION
  Report Type: Spontaneous
  Country: CA (occurrence: CA)
  Receive Date: 20200622
  Receipt Date: 20200928
  Transmission Date: 20201103
  Serious: Yes (Other)
  Sender: FDA-Public Use
  Company Number: CA-GLAXOSMITHKLINE-CA2020AMR105232

PATIENT
  Sex: Female
  Weight: 75 kg

DRUGS (2)
  1. BENLYSTA [Suspect]
     Active Substance: BELIMUMAB
     Indication: SYSTEMIC LUPUS ERYTHEMATOSUS
     Dosage: 10 MG/KG
  2. BENLYSTA [Suspect]
     Active Substance: BELIMUMAB
     Dosage: 10 MG/KG

REACTIONS (5)
  - Ophthalmic herpes zoster [Unknown]
  - Sinusitis [Unknown]
  - Eye pain [Unknown]
  - Inappropriate schedule of product administration [Unknown]
  - Pyrexia [Unknown]
